FAERS Safety Report 8959569 (Version 1)
Quarter: 2012Q4

REPORT INFORMATION
  Report Type: 
  Country: GB (occurrence: GB)
  Receive Date: 20121211
  Receipt Date: 20121211
  Transmission Date: 20130627
  Serious: Yes (Other)
  Sender: FDA-Public Use
  Company Number: GB-ELI_LILLY_AND_COMPANY-GB201211008928

PATIENT
  Age: 33 Year
  Sex: Female
  Weight: 102.5 kg

DRUGS (4)
  1. BYETTA [Suspect]
     Indication: DIABETES MELLITUS
     Dosage: UNK, bid
     Route: 030
     Dates: start: 20120702
  2. LOSARTAN [Concomitant]
     Dosage: 25 mg, qd
  3. METFORMIN [Concomitant]
     Dosage: 1 g, bid
  4. SOLIFENACIN [Concomitant]
     Dosage: 5 mg, qd

REACTIONS (3)
  - Nephrolithiasis [Not Recovered/Not Resolved]
  - Thirst decreased [Not Recovered/Not Resolved]
  - Incorrect route of drug administration [Unknown]
